FAERS Safety Report 19072683 (Version 1)
Quarter: 2021Q1

REPORT INFORMATION
  Report Type: Spontaneous
  Country: DE (occurrence: DE)
  Receive Date: 20210330
  Receipt Date: 20210330
  Transmission Date: 20210420
  Serious: Yes (Other)
  Sender: FDA-Public Use
  Company Number: DE-TEVA-2021-DE-1896521

PATIENT
  Age: 50 Year
  Sex: Female

DRUGS (4)
  1. CARBAMAZEPIN ARISTO RETARD 400 MG [Concomitant]
     Dosage: 400 MILLIGRAM DAILY;
  2. ORFIRIL LONG 500 MG [Concomitant]
     Dosage: 1000 MILLIGRAM DAILY;
  3. COPAXONE [Suspect]
     Active Substance: GLATIRAMER ACETATE
     Indication: MULTIPLE SCLEROSIS
     Dosage: 20 MILLIGRAM DAILY;
     Dates: start: 20020201
  4. EUTHYROX 25 UG TABLETS [Concomitant]
     Dosage: 25 MICROGRAM DAILY;

REACTIONS (1)
  - Neoplasm malignant [Recovered/Resolved]

NARRATIVE: CASE EVENT DATE: 2014
